FAERS Safety Report 21803948 (Version 2)
Quarter: 2023Q1

REPORT INFORMATION
  Report Type: Report from Study
  Country: PR (occurrence: PR)
  Receive Date: 20230102
  Receipt Date: 20230102
  Transmission Date: 20230418
  Serious: No
  Sender: FDA-Public Use
  Company Number: PR-ABBVIE-4244878

PATIENT
  Sex: Female
  Weight: 92.986 kg

DRUGS (19)
  1. HUMIRA [Suspect]
     Active Substance: ADALIMUMAB
     Indication: Rheumatoid arthritis
     Dosage: 40MG/0.4ML?FORM STRENGTH: 40 MG
     Route: 058
     Dates: start: 20210201, end: 20221219
  2. HUMIRA [Suspect]
     Active Substance: ADALIMUMAB
     Dosage: FORM STRENGTH: 40 MG
     Route: 058
     Dates: start: 20220114, end: 20230131
  3. FOLIC ACID [Concomitant]
     Active Substance: FOLIC ACID
     Indication: Rheumatoid arthritis
     Route: 048
  4. PLAQUENIL [Concomitant]
     Active Substance: HYDROXYCHLOROQUINE SULFATE
     Indication: Rheumatoid arthritis
     Route: 048
     Dates: start: 2018
  5. ELASOMERAN [Concomitant]
     Active Substance: ELASOMERAN
     Indication: COVID-19
     Dosage: 1ST DOSE
     Route: 030
     Dates: start: 20210312, end: 20210312
  6. ELASOMERAN [Concomitant]
     Active Substance: ELASOMERAN
     Indication: COVID-19
     Dosage: 2ND DOSE
     Route: 030
     Dates: start: 20210419, end: 20210419
  7. ELASOMERAN [Concomitant]
     Active Substance: ELASOMERAN
     Indication: COVID-19
     Dosage: 4TH DOSE
     Route: 030
     Dates: start: 20221211, end: 20221211
  8. ELASOMERAN [Concomitant]
     Active Substance: ELASOMERAN
     Indication: COVID-19
     Dosage: 3RD DOSE
     Route: 030
     Dates: start: 20210901, end: 20210901
  9. ELASOMERAN [Concomitant]
     Active Substance: ELASOMERAN
     Indication: COVID-19
     Dosage: TIME INTERVAL: TOTAL: 3RD DOSE (1ST BOOSTER DOSE)?ONE IN ONCE
     Route: 030
     Dates: start: 20210901, end: 20210901
  10. ELASOMERAN [Concomitant]
     Active Substance: ELASOMERAN
     Indication: COVID-19
     Dosage: TIME INTERVAL: TOTAL: 2ND DOSE?ONE IN ONCE
     Route: 030
     Dates: start: 20210419, end: 20210419
  11. ELASOMERAN [Concomitant]
     Active Substance: ELASOMERAN
     Indication: COVID-19
     Dosage: TIME INTERVAL: TOTAL: 1ST DOSE?ONE IN ONCE
     Route: 030
     Dates: start: 20210312, end: 20210312
  12. ELASOMERAN [Concomitant]
     Active Substance: ELASOMERAN
     Indication: COVID-19
     Dosage: TIME INTERVAL: TOTAL: 4TH DOSE (2ND BOOSTER DOSE)?ONE IN ONCE
     Route: 030
     Dates: start: 20221211, end: 20221211
  13. PAXLOVID [Concomitant]
     Active Substance: NIRMATRELVIR\RITONAVIR
     Indication: COVID-19
     Route: 048
  14. ATORVASTATIN [Concomitant]
     Active Substance: ATORVASTATIN
     Indication: Blood cholesterol
     Route: 048
     Dates: start: 2012
  15. METHOTREXATE [Concomitant]
     Active Substance: METHOTREXATE
     Indication: Rheumatoid arthritis
     Route: 048
     Dates: start: 2018
  16. METHOTREXATE [Concomitant]
     Active Substance: METHOTREXATE
     Indication: Rheumatoid arthritis
     Route: 048
  17. FENOFIBRATE S [Concomitant]
     Indication: Product used for unknown indication
     Route: 048
  18. ACEBUTOLOL [Concomitant]
     Active Substance: ACEBUTOLOL
     Indication: Hypertension
     Route: 048
     Dates: start: 2012
  19. ACEBUTOLOL [Concomitant]
     Active Substance: ACEBUTOLOL
     Indication: Hypertension
     Route: 048

REACTIONS (1)
  - COVID-19 [Recovered/Resolved]

NARRATIVE: CASE EVENT DATE: 20221217
